FAERS Safety Report 17289544 (Version 5)
Quarter: 2020Q1

REPORT INFORMATION
  Report Type: Spontaneous
  Country: US (occurrence: US)
  Receive Date: 20200120
  Receipt Date: 20200212
  Transmission Date: 20200409
  Serious: Yes (Other)
  Sender: FDA-Public Use
  Company Number: US-IPSEN BIOPHARMACEUTICALS, INC.-2019-21093

PATIENT
  Age: 38 Year
  Sex: Female
  Weight: 58.05 kg

DRUGS (21)
  1. DYSPORT [Suspect]
     Active Substance: ABOBOTULINUMTOXINA
     Indication: SKIN WRINKLING
     Dosage: 150 IU, 60 UNITS IN GLABELLA 12 UNITS PER 5 INJECTION SITE, 30 IN FRONTALIS 6 UNITS PER 5 INJECTION
     Route: 030
     Dates: start: 20190808, end: 20190808
  2. SCULPTRA [Suspect]
     Active Substance: POLYLACTIDE, L-
     Indication: SKIN WRINKLING
     Route: 065
     Dates: start: 20190822, end: 20190822
  3. MULTIVITAMINS [Concomitant]
     Active Substance: VITAMINS
     Indication: VITAMIN SUPPLEMENTATION
  4. BUSPAR [Concomitant]
     Active Substance: BUSPIRONE HYDROCHLORIDE
  5. FLOVENT [Concomitant]
     Active Substance: FLUTICASONE PROPIONATE
  6. DYSPORT [Suspect]
     Active Substance: ABOBOTULINUMTOXINA
     Indication: OFF LABEL USE
  7. BOTOX [Concomitant]
     Active Substance: ONABOTULINUMTOXINA
     Indication: PRODUCT USED FOR UNKNOWN INDICATION
     Dates: start: 20191102, end: 20191102
  8. ALBUTEROL. [Concomitant]
     Active Substance: ALBUTEROL
     Indication: ASTHMA
  9. LIPITOR [Concomitant]
     Active Substance: ATORVASTATIN CALCIUM
  10. ADDERALL [Concomitant]
     Active Substance: AMPHETAMINE ASPARTATE\AMPHETAMINE SULFATE\DEXTROAMPHETAMINE SACCHARATE\DEXTROAMPHETAMINE SULFATE
  11. BOTOX [Suspect]
     Active Substance: ONABOTULINUMTOXINA
     Indication: SKIN WRINKLING
  12. DYSPORT [Suspect]
     Active Substance: ABOBOTULINUMTOXINA
     Indication: SKIN WRINKLING
  13. BOTOX [Suspect]
     Active Substance: ONABOTULINUMTOXINA
     Indication: SKIN WRINKLING
     Dates: start: 20190808, end: 20190808
  14. SOMA [Concomitant]
     Active Substance: CARISOPRODOL
  15. COLLAGEN [Concomitant]
     Active Substance: COLLAGEN
  16. RESTYLANE [Suspect]
     Active Substance: HYALURONIC ACID
     Indication: SKIN WRINKLING
  17. PREDNISONE. [Concomitant]
     Active Substance: PREDNISONE
  18. KLONOPIN [Concomitant]
     Active Substance: CLONAZEPAM
     Indication: ANXIETY
     Dosage: DAILY
  19. FLONASE [Concomitant]
     Active Substance: FLUTICASONE PROPIONATE
     Indication: HYPERSENSITIVITY
     Dates: start: 2015
  20. DYSPORT [Suspect]
     Active Substance: ABOBOTULINUMTOXINA
     Indication: SKIN WRINKLING
  21. BENADRYL [Concomitant]
     Active Substance: DIPHENHYDRAMINE HYDROCHLORIDE

REACTIONS (20)
  - Eye pain [Recovered/Resolved]
  - Corneal abrasion [Recovered/Resolved]
  - Injection site nodule [Recovered/Resolved]
  - Eye pain [Recovered/Resolved]
  - Incorrect product administration duration [Unknown]
  - Poor quality product administered [Unknown]
  - Eye pruritus [Recovered/Resolved]
  - Prescribed overdose [Unknown]
  - Eye discharge [Recovered/Resolved]
  - Eye irritation [Unknown]
  - Product storage error [Unknown]
  - Blindness [Unknown]
  - Injection site reaction [Not Recovered/Not Resolved]
  - Accidental exposure to product [Unknown]
  - Ocular hyperaemia [Recovered/Resolved]
  - Off label use [Unknown]
  - Eye infection [Unknown]
  - Off label use [Unknown]
  - Injection site reaction [Recovered/Resolved]
  - Drug ineffective [Unknown]

NARRATIVE: CASE EVENT DATE: 201908
